FAERS Safety Report 6574099-0 (Version None)
Quarter: 2010Q1

REPORT INFORMATION
  Report Type: 
  Country: None (occurrence: None)
  Receive Date: 20100208
  Receipt Date: 20100202
  Transmission Date: 20100710
  Serious: No
  Sender: FDA-Public Use
  Company Number: US-BAYER-201013005NA

PATIENT
  Age: 28 Year
  Sex: Female
  Weight: 113 kg

DRUGS (1)
  1. YASMIN [Suspect]
     Indication: CONTRACEPTION
     Route: 048
     Dates: start: 19980101

REACTIONS (5)
  - JOINT SWELLING [None]
  - MIGRAINE WITH AURA [None]
  - MUSCLE SPASMS [None]
  - OEDEMA PERIPHERAL [None]
  - WEIGHT INCREASED [None]
